FAERS Safety Report 6139099 (Version 6)
Quarter: 2013Q4

REPORT INFORMATION
  Report Type: Report from Study
  Country: AT (occurrence: AT)
  Receive Date: 20060929
  Receipt Date: 20131028
  Transmission Date: 20140711
  Serious: Yes (Death, Hospitalization)
  Sender: FDA-Public Use
  Company Number: AT-ROCHE-463998

PATIENT
  Age: 43 Year
  Sex: Male
  Weight: 65 kg

DRUGS (13)
  1. PEG-INTERFERON ALFA 2A [Suspect]
     Indication: CHRONIC HEPATITIS C
     Dosage: FORM = INJECTION?DATE OF LAST DOSE PRIOR TO SAE = 15 SEPTEMBER 2006
     Route: 058
  2. RIBAVIRIN [Suspect]
     Indication: CHRONIC HEPATITIS C
     Route: 048
     Dates: start: 20060901, end: 20060919
  3. RIBAVIRIN [Suspect]
     Route: 048
  4. STAVUDINE [Concomitant]
     Route: 065
  5. TENOFOVIR [Concomitant]
     Route: 065
  6. EFAVIRENZ [Concomitant]
     Route: 065
  7. RUTOSID [Concomitant]
     Route: 065
  8. FUROSEMIDE [Concomitant]
     Route: 065
  9. BUTIZIDE [Concomitant]
     Route: 065
  10. SALMETEROL [Concomitant]
     Route: 065
  11. PANTOPRAZOL [Concomitant]
     Route: 065
  12. OXAZEPAM [Concomitant]
     Route: 065
  13. SPIRONOLACTONE [Concomitant]
     Route: 065

REACTIONS (13)
  - Pancytopenia [Fatal]
  - Anaemia [Fatal]
  - Leukopenia [Fatal]
  - Syncope [Recovered/Resolved]
  - Hypokalaemia [Recovered/Resolved]
  - Haematemesis [Recovered/Resolved]
  - Lipase increased [Recovered/Resolved]
  - Hypokalaemia [Recovered/Resolved]
  - Diarrhoea [Recovered/Resolved]
  - Vomiting [Recovered/Resolved]
  - CD4 lymphocytes decreased [Recovered/Resolved with Sequelae]
  - Hyponatraemia [Recovered/Resolved]
  - Amylase increased [Recovered/Resolved]
